FAERS Safety Report 15155399 (Version 9)
Quarter: 2019Q1

REPORT INFORMATION
  Report Type: Report from Study
  Country: US (occurrence: US)
  Receive Date: 20180717
  Receipt Date: 20190304
  Transmission Date: 20190417
  Serious: Yes (Other)
  Sender: FDA-Public Use
  Company Number: PHEH2018US029318

PATIENT
  Age: 62 Year
  Sex: Female

DRUGS (1)
  1. COSENTYX [Suspect]
     Active Substance: SECUKINUMAB
     Indication: PRODUCT USED FOR UNKNOWN INDICATION
     Dosage: 150 MG, QMO
     Route: 030

REACTIONS (15)
  - Cough [Unknown]
  - Rash [Unknown]
  - Nasopharyngitis [Unknown]
  - Laryngitis [Unknown]
  - Drug ineffective [Unknown]
  - Psoriatic arthropathy [Unknown]
  - Inflammation [Unknown]
  - Irritable bowel syndrome [Unknown]
  - Product storage error [Unknown]
  - Psoriasis [Unknown]
  - Dysphonia [Unknown]
  - Pain [Unknown]
  - Rhinorrhoea [Unknown]
  - Incorrect route of product administration [Unknown]
  - Condition aggravated [Unknown]

NARRATIVE: CASE EVENT DATE: 201807
